FAERS Safety Report 7415904-5 (Version None)
Quarter: 2011Q2

REPORT INFORMATION
  Report Type: 
  Country: None (occurrence: None)
  Receive Date: 20110406
  Receipt Date: 20110322
  Transmission Date: 20111010
  Serious: Yes (Hospitalization)
  Sender: FDA-Public Use
  Company Number: 2011MA002757

PATIENT
  Age: 8 Month
  Sex: Female
  Weight: 7 kg

DRUGS (1)
  1. TRAMADOL HYDROCHLORIDE [Suspect]
     Dosage: 200 MG;1X;PO
     Route: 048

REACTIONS (8)
  - INSOMNIA [None]
  - PALLOR [None]
  - SOMNOLENCE [None]
  - ACCIDENTAL DRUG INTAKE BY CHILD [None]
  - EPISTAXIS [None]
  - SEROTONIN SYNDROME [None]
  - COMA SCALE ABNORMAL [None]
  - TOXICITY TO VARIOUS AGENTS [None]
